FAERS Safety Report 8319136-8 (Version None)
Quarter: 2012Q2

REPORT INFORMATION
  Report Type: 
  Country: None (occurrence: None)
  Receive Date: 20120427
  Receipt Date: 20120419
  Transmission Date: 20120825
  Serious: Yes (Hospitalization)
  Sender: FDA-Public Use
  Company Number: FR-MERCK-1204FRA00085

PATIENT
  Age: 22 Year
  Sex: Female

DRUGS (3)
  1. BUDESONIDE AND FORMOTEROL FUMARATE [Concomitant]
     Indication: ASTHMA
     Route: 048
  2. SINGULAIR [Suspect]
     Indication: ASTHMA
     Route: 048
     Dates: start: 20080101, end: 20111101
  3. TERBUTALINE SULFATE [Concomitant]
     Indication: ASTHMA
     Route: 048

REACTIONS (1)
  - MYOPERICARDITIS [None]
